FAERS Safety Report 6303432-X (Version None)
Quarter: 2009Q3

REPORT INFORMATION
  Report Type: 
  Country: None (occurrence: None)
  Receive Date: 20090810
  Receipt Date: 20090729
  Transmission Date: 20100115
  Serious: Yes (Other)
  Sender: FDA-Public Use
  Company Number: CN-PFIZER INC-2009247481

PATIENT
  Age: 44 Year

DRUGS (2)
  1. SOLU-MEDROL [Suspect]
     Indication: DERMATOMYOSITIS
     Dates: start: 20090601, end: 20090727
  2. METOPROLOL TARTRATE [Concomitant]
     Route: 048

REACTIONS (3)
  - ELECTROCARDIOGRAM ST SEGMENT ABNORMAL [None]
  - HEART RATE INCREASED [None]
  - PYREXIA [None]
